FAERS Safety Report 5960336-X (Version None)
Quarter: 2008Q4

REPORT INFORMATION
  Report Type: 
  Country: None (occurrence: None)
  Receive Date: 20081114
  Receipt Date: 20080131
  Transmission Date: 20090506
  Serious: Yes (Other)
  Sender: FDA-Public Use
  Company Number: 44865

PATIENT
  Age: 60 Year
  Sex: Male

DRUGS (1)
  1. CARBOPLATIN [Suspect]
     Indication: LUNG NEOPLASM MALIGNANT
     Dosage: 170MG IV; (FOURTH CYCLE OF THERAPY)
     Route: 042
     Dates: start: 20070524

REACTIONS (1)
  - HYPERSENSITIVITY [None]
